FAERS Safety Report 17997167 (Version 3)
Quarter: 2020Q3

REPORT INFORMATION
  Report Type: Report from Study
  Country: DE (occurrence: DE)
  Receive Date: 20200708
  Receipt Date: 20200723
  Transmission Date: 20201103
  Serious: Yes (Death, Other)
  Sender: FDA-Public Use
  Company Number: DE-BRISTOL-MYERS SQUIBB COMPANY-BMS-2020-054501

PATIENT
  Age: 58 Year
  Sex: Male

DRUGS (3)
  1. NIVOLUMAB [Suspect]
     Active Substance: NIVOLUMAB
     Indication: RENAL CELL CARCINOMA
     Dosage: 225 MILLIGRAM, Q3WK
     Route: 042
     Dates: start: 20200511, end: 20200622
  2. IPILIMUMAB [Suspect]
     Active Substance: IPILIMUMAB
     Indication: RENAL CELL CARCINOMA
     Dosage: 75 MILLIGRAM, Q3WK
     Route: 042
     Dates: start: 20200511, end: 20200622
  3. DEXAMETHASONE. [Concomitant]
     Active Substance: DEXAMETHASONE
     Indication: PRODUCT USED FOR UNKNOWN INDICATION
     Dosage: 3X2 MG PER DAY
     Route: 065
     Dates: end: 20200707

REACTIONS (1)
  - Death [Fatal]

NARRATIVE: CASE EVENT DATE: 20200707
